FAERS Safety Report 7205759-6 (Version None)
Quarter: 2010Q4

REPORT INFORMATION
  Report Type: 
  Country: None (occurrence: None)
  Receive Date: 20101231
  Receipt Date: 20101223
  Transmission Date: 20110411
  Serious: Yes (Other)
  Sender: FDA-Public Use
  Company Number: US-BRISTOL-MYERS SQUIBB COMPANY-15464316

PATIENT
  Age: 78 Year
  Sex: Female

DRUGS (6)
  1. DOXORUBICIN HCL [Suspect]
  2. CYCLOPHOSPHAMIDE [Suspect]
  3. ETOPOSIDE [Suspect]
  4. VINCRISTINE [Suspect]
  5. RITUXIMAB [Suspect]
  6. PREDNISONE [Suspect]

REACTIONS (1)
  - HEPATITIS B [None]
